FAERS Safety Report 12233881 (Version 1)
Quarter: 2016Q2

REPORT INFORMATION
  Report Type: Spontaneous
  Country: US (occurrence: None)
  Receive Date: 20160401
  Receipt Date: 20160401
  Transmission Date: 20160815
  Serious: Yes (Disabling)
  Sender: FDA-Public Use
  Company Number: None

PATIENT
  Age: 73 Year
  Sex: Male
  Weight: 80.74 kg

DRUGS (8)
  1. MULTI VITAMIN [Concomitant]
     Active Substance: VITAMINS
  2. VITAMIN D3 [Concomitant]
     Active Substance: CHOLECALCIFEROL
  3. CALCIUM [Concomitant]
     Active Substance: CALCIUM
  4. RECLAST [Suspect]
     Active Substance: ZOLEDRONIC ACID
     Indication: OSTEOPOROSIS
     Dosage: ONE INFUSION ANNUA, INTO A VIEW
     Route: 028
     Dates: start: 20160106, end: 20160107
  5. BYSTOLIC [Concomitant]
     Active Substance: NEBIVOLOL HYDROCHLORIDE
  6. ZOCOR [Concomitant]
     Active Substance: SIMVASTATIN
  7. NEXIUM [Concomitant]
     Active Substance: ESOMEPRAZOLE MAGNESIUM
  8. LEXAPRO [Concomitant]
     Active Substance: ESCITALOPRAM OXALATE

REACTIONS (13)
  - Blood pressure increased [None]
  - Heart rate increased [None]
  - Pain in extremity [None]
  - Myositis [None]
  - Myalgia [None]
  - Neck pain [None]
  - Arthralgia [None]
  - Hypoaesthesia [None]
  - Asthenia [None]
  - Arthritis [None]
  - Gait disturbance [None]
  - Back pain [None]
  - Sleep disorder [None]

NARRATIVE: CASE EVENT DATE: 20160106
